FAERS Safety Report 8786279 (Version 2)
Quarter: 2014Q2

REPORT INFORMATION
  Report Type: Report from Study
  Country: JP (occurrence: JP)
  Receive Date: 20120914
  Receipt Date: 20140402
  Transmission Date: 20141212
  Serious: Yes (Death, Hospitalization)
  Sender: FDA-Public Use
  Company Number: JP-CELGENEUS-087-50794-12091391

PATIENT
  Age: 72 Year
  Sex: Male
  Weight: 1.46 kg

DRUGS (8)
  1. VIDAZA [Suspect]
     Indication: MYELODYSPLASTIC SYNDROME
     Route: 058
     Dates: start: 20120509, end: 20120511
  2. VIDAZA [Suspect]
     Route: 058
     Dates: start: 20120514, end: 20120517
  3. VIDAZA [Suspect]
     Route: 058
     Dates: start: 20120627, end: 20120629
  4. VIDAZA [Suspect]
     Route: 058
     Dates: start: 20120702, end: 20120703
  5. EMEND [Concomitant]
     Indication: PRODUCT USED FOR UNKNOWN INDICATION
     Route: 065
     Dates: start: 20120509, end: 20120509
  6. EMEND [Concomitant]
     Route: 065
     Dates: start: 20120510, end: 20120511
  7. NASEA-OD [Concomitant]
     Indication: PRODUCT USED FOR UNKNOWN INDICATION
     Route: 065
     Dates: start: 20120509, end: 20120513
  8. KYTRIL [Concomitant]
     Indication: PRODUCT USED FOR UNKNOWN INDICATION
     Route: 065
     Dates: start: 20120627, end: 20120701

REACTIONS (3)
  - Myelodysplastic syndrome [Fatal]
  - Pneumonia [Recovered/Resolved]
  - Platelet count decreased [Recovered/Resolved]
